FAERS Safety Report 15570216 (Version 4)
Quarter: 2019Q2

REPORT INFORMATION
  Report Type: Report from Study
  Country: GB (occurrence: GB)
  Receive Date: 20181031
  Receipt Date: 20190510
  Transmission Date: 20190711
  Serious: Yes (Other)
  Sender: FDA-Public Use
  Company Number: PHHY2018GB141839

PATIENT
  Sex: Female

DRUGS (2)
  1. COSENTYX [Suspect]
     Active Substance: SECUKINUMAB
     Indication: PSORIATIC ARTHROPATHY
     Dosage: 150 MG, UNK (ON WEEKS 0, 1, 2 AND 3 THEN ONCE MONTHLY)
     Route: 058
     Dates: start: 20180911
  2. COSENTYX [Suspect]
     Active Substance: SECUKINUMAB
     Dosage: 150 MG, QMO
     Route: 058

REACTIONS (4)
  - Pain [Unknown]
  - Malaise [Unknown]
  - Ill-defined disorder [Unknown]
  - Lower respiratory tract infection [Unknown]
